FAERS Safety Report 21656482 (Version 2)
Quarter: 2022Q4

REPORT INFORMATION
  Report Type: Report from Study
  Country: ES (occurrence: ES)
  Receive Date: 20221129
  Receipt Date: 20221201
  Transmission Date: 20230113
  Serious: Yes (Hospitalization)
  Sender: FDA-Public Use
  Company Number: ES-ABBVIE-22K-144-4485784-00

PATIENT
  Sex: Male
  Weight: 76 kg

DRUGS (8)
  1. CARBIDOPA\LEVODOPA [Suspect]
     Active Substance: CARBIDOPA\LEVODOPA
     Indication: Parkinson^s disease
     Route: 050
     Dates: start: 20171019
  2. CARBIDOPA\LEVODOPA [Suspect]
     Active Substance: CARBIDOPA\LEVODOPA
     Dosage: INCREASE THE CONTINUOUS RATE 0.1 ML/HOUR
     Route: 050
     Dates: end: 202208
  3. CARBIDOPA\LEVODOPA [Suspect]
     Active Substance: CARBIDOPA\LEVODOPA
     Dosage: DECREASED CONTINUES DOSE 0.4ML
     Route: 050
     Dates: start: 202208, end: 202208
  4. CARBIDOPA\LEVODOPA [Suspect]
     Active Substance: CARBIDOPA\LEVODOPA
     Dosage: INCREASED EXTRA DOSE BY 0.5ML AND CONTINUOUS DOSE BY 0.1 ML
     Route: 050
     Dates: start: 202208, end: 202208
  5. CARBIDOPA\LEVODOPA [Suspect]
     Active Substance: CARBIDOPA\LEVODOPA
     Dosage: DECREASED CONTINUES DOSE 0.3ML
     Route: 050
     Dates: start: 202208, end: 202208
  6. CARBIDOPA\LEVODOPA [Suspect]
     Active Substance: CARBIDOPA\LEVODOPA
     Dosage: DECREASED CONTINUES DOSE 0.3ML
     Route: 050
     Dates: start: 202208, end: 202209
  7. CARBIDOPA\LEVODOPA [Suspect]
     Active Substance: CARBIDOPA\LEVODOPA
     Dosage: CONTINUOUS DOSE INCREASED BY 0.3ML
     Route: 050
     Dates: start: 202209
  8. RIVASTIGMINE [Concomitant]
     Active Substance: RIVASTIGMINE
     Indication: Product used for unknown indication
     Route: 048
     Dates: start: 202206

REACTIONS (7)
  - Mobility decreased [Not Recovered/Not Resolved]
  - Arthropathy [Recovering/Resolving]
  - Device power source issue [Unknown]
  - Freezing phenomenon [Not Recovered/Not Resolved]
  - Gait inability [Not Recovered/Not Resolved]
  - On and off phenomenon [Recovering/Resolving]
  - Therapeutic product effect incomplete [Not Recovered/Not Resolved]

NARRATIVE: CASE EVENT DATE: 20220101
